FAERS Safety Report 11611295 (Version 1)
Quarter: 2015Q4

REPORT INFORMATION
  Report Type: Spontaneous
  Country: BR (occurrence: BR)
  Receive Date: 20151008
  Receipt Date: 20151008
  Transmission Date: 20160304
  Serious: Yes (Other)
  Sender: FDA-Public Use
  Company Number: BR-PFIZER INC-2015329494

PATIENT
  Age: 56 Year
  Sex: Female
  Weight: 64 kg

DRUGS (4)
  1. HIGROTON [Concomitant]
     Active Substance: CHLORTHALIDONE
     Indication: DIURETIC THERAPY
     Dosage: 1 UNIT A DAY
     Dates: start: 1991
  2. AZORGA [Suspect]
     Active Substance: BRINZOLAMIDE\TIMOLOL MALEATE
     Indication: GLAUCOMA
     Dosage: ONE DROP DAILY, 2X/DAY
     Dates: start: 2013
  3. XALATAN [Suspect]
     Active Substance: LATANOPROST
  4. ATENOLOL. [Concomitant]
     Active Substance: ATENOLOL
     Indication: HYPERTENSION
     Dosage: ONE UNIT A DAY
     Dates: start: 1991

REACTIONS (4)
  - Vision blurred [Not Recovered/Not Resolved]
  - Blindness [Not Recovered/Not Resolved]
  - Hypoaesthesia [Not Recovered/Not Resolved]
  - Dry eye [Not Recovered/Not Resolved]
